FAERS Safety Report 7194862-5 (Version None)
Quarter: 2010Q4

REPORT INFORMATION
  Report Type: 
  Country: None (occurrence: None)
  Receive Date: 20101223
  Receipt Date: 20100920
  Transmission Date: 20110411
  Serious: No
  Sender: FDA-Public Use
  Company Number: US-AMGEN-KDL439873

PATIENT

DRUGS (2)
  1. ENBREL [Suspect]
     Indication: PSORIASIS
     Dosage: 50 MG, QWK
     Route: 058
     Dates: start: 20100830
  2. CYCLOPHOSPHAMIDE [Concomitant]
     Dosage: UNK UNK, UNK

REACTIONS (4)
  - DYSGEUSIA [None]
  - INJECTION SITE PAIN [None]
  - MUSCLE SPASMS [None]
  - URINE COLOUR ABNORMAL [None]
